FAERS Safety Report 5845090-4 (Version None)
Quarter: 2008Q3

REPORT INFORMATION
  Report Type: 
  Country: None (occurrence: None)
  Receive Date: 20080813
  Receipt Date: 20080813
  Transmission Date: 20090109
  Serious: Yes (Other)
  Sender: FDA-Public Use
  Company Number: None

PATIENT
  Sex: Female

DRUGS (6)
  1. REVLIMID [Suspect]
     Indication: MULTIPLE MYELOMA
     Dosage: 15MG DAILY 21D/28D PO
     Route: 048
  2. ZOMETA [Concomitant]
  3. LEVOTHROID [Concomitant]
  4. OMEPRAZOLE [Concomitant]
  5. OPIUM TINCTURE [Concomitant]
  6. MIDRIN [Concomitant]

REACTIONS (1)
  - NEUTROPENIA [None]
